FAERS Safety Report 6048821-6 (Version None)
Quarter: 2009Q1

REPORT INFORMATION
  Report Type: 
  Country: None (occurrence: None)
  Receive Date: 20090123
  Receipt Date: 20090116
  Transmission Date: 20090719
  Serious: Yes (Other)
  Sender: FDA-Public Use
  Company Number: US-MERCK-0901USA02512

PATIENT
  Age: 76 Year
  Sex: Female

DRUGS (6)
  1. COZAAR [Suspect]
     Indication: HYPERTENSION
     Route: 048
     Dates: start: 19960101, end: 20080118
  2. GLIPIZIDE [Concomitant]
     Route: 065
  3. LANTUS [Concomitant]
     Route: 065
  4. LANTUS [Concomitant]
     Route: 065
  5. AGGRENOX [Suspect]
     Route: 065
  6. INFLUENZA VIRUS VACCINE (UNSPECIFIED) [Suspect]
     Route: 065

REACTIONS (15)
  - ALOPECIA [None]
  - BLOOD GLUCOSE INCREASED [None]
  - CEREBROVASCULAR ACCIDENT [None]
  - COUGH [None]
  - DIZZINESS [None]
  - INFLUENZA [None]
  - LIP DRY [None]
  - LIP SWELLING [None]
  - MENINGIOMA [None]
  - MUSCLE SPASMS [None]
  - NEPHROLITHIASIS [None]
  - PARAESTHESIA ORAL [None]
  - PRURITUS [None]
  - RHINORRHOEA [None]
  - SNEEZING [None]
